FAERS Safety Report 4445707-5 (Version None)
Quarter: 2004Q3

REPORT INFORMATION
  Report Type: 
  Country: None (occurrence: None)
  Receive Date: 20040903
  Receipt Date: 20040827
  Transmission Date: 20050211
  Serious: Yes (Hospitalization)
  Sender: FDA-Public Use
  Company Number: A0523682A

PATIENT
  Age: 44 Year
  Sex: Male

DRUGS (1)
  1. NICODERM CQ [Suspect]
     Indication: SMOKING CESSATION THERAPY
     Dosage: 14 MG / UNK / TRANSDERMAL
     Route: 062
     Dates: start: 20040627

REACTIONS (4)
  - APPENDICITIS [None]
  - DIZZINESS [None]
  - DRUG INTERACTION [None]
  - NECK PAIN [None]
